FAERS Safety Report 19867150 (Version 1)
Quarter: 2021Q3

REPORT INFORMATION
  Report Type: Spontaneous
  Country: US (occurrence: US)
  Receive Date: 20210921
  Receipt Date: 20210921
  Transmission Date: 20211014
  Serious: No
  Sender: FDA-Public Use
  Company Number: US-BRAINTREE LABORATORIES, INC.-2021BTE00010

PATIENT
  Age: 76 Year
  Sex: Male

DRUGS (11)
  1. SERTRALINE [Concomitant]
     Active Substance: SERTRALINE HYDROCHLORIDE
  2. FINASTERIDE. [Concomitant]
     Active Substance: FINASTERIDE
  3. METOPROLOL. [Concomitant]
     Active Substance: METOPROLOL
  4. PROBIOTICS [Concomitant]
     Active Substance: PROBIOTICS NOS
  5. ROSUVASTATIN. [Concomitant]
     Active Substance: ROSUVASTATIN
  6. BABY ASPIRIN [Concomitant]
     Active Substance: ASPIRIN
  7. ELIQUIS [Concomitant]
     Active Substance: APIXABAN
  8. LOSARTAN. [Concomitant]
     Active Substance: LOSARTAN
  9. IMBRUVICA [Concomitant]
     Active Substance: IBRUTINIB
  10. SUPREP BOWEL PREP [Suspect]
     Active Substance: MAGNESIUM SULFATE\POTASSIUM SULFATE\SODIUM SULFATE
     Indication: COLONOSCOPY
     Dosage: 0.5 X 6 OZ. BOTTLE, 1X
     Route: 048
     Dates: start: 20210106
  11. LANSOPRAZOLE. [Concomitant]
     Active Substance: LANSOPRAZOLE

REACTIONS (1)
  - Vomiting [Recovered/Resolved]

NARRATIVE: CASE EVENT DATE: 20210106
